FAERS Safety Report 8125042-4 (Version None)
Quarter: 2012Q1

REPORT INFORMATION
  Report Type: 
  Country: None (occurrence: None)
  Receive Date: 20120209
  Receipt Date: 20120117
  Transmission Date: 20120608
  Serious: Yes (Other)
  Sender: FDA-Public Use
  Company Number: US-BAYER-2012-005044

PATIENT
  Age: 53 Year
  Sex: Male

DRUGS (1)
  1. LEVITRA [Suspect]
     Indication: ERECTILE DYSFUNCTION
     Dosage: 10 MG, UNK
     Route: 048
     Dates: start: 20120115

REACTIONS (6)
  - NAUSEA [None]
  - FEELING ABNORMAL [None]
  - AMNESIA [None]
  - ABDOMINAL DISCOMFORT [None]
  - HEADACHE [None]
  - RHINORRHOEA [None]
